FAERS Safety Report 10569053 (Version 6)
Quarter: 2015Q2

REPORT INFORMATION
  Report Type: Spontaneous
  Country: US (occurrence: US)
  Receive Date: 20141106
  Receipt Date: 20150610
  Transmission Date: 20150821
  Serious: Yes (Hospitalization, Other)
  Sender: FDA-Public Use
  Company Number: US-BAYER-2014-161568

PATIENT
  Age: 30 Year
  Sex: Female

DRUGS (1)
  1. MIRENA [Suspect]
     Active Substance: LEVONORGESTREL
     Indication: CONTRACEPTION
     Dosage: 20 MCG/24HR, CONT
     Route: 015
     Dates: start: 20100503, end: 20121019

REACTIONS (10)
  - Device dislocation [Not Recovered/Not Resolved]
  - Vaginal haemorrhage [None]
  - Depression [None]
  - Injury [Not Recovered/Not Resolved]
  - Device breakage [None]
  - Habitual abortion [None]
  - Infertility female [None]
  - Pelvic pain [Not Recovered/Not Resolved]
  - Device issue [Not Recovered/Not Resolved]
  - Procedural pain [None]

NARRATIVE: CASE EVENT DATE: 20100503
